FAERS Safety Report 11347945 (Version 1)
Quarter: 2015Q3

REPORT INFORMATION
  Report Type: Spontaneous
  Country: US (occurrence: US)
  Receive Date: 20150803
  Receipt Date: 20150803
  Transmission Date: 20151125
  Serious: No
  Sender: FDA-Public Use
  Company Number: US-ELI_LILLY_AND_COMPANY-US201112005130

PATIENT
  Age: 52 Year
  Sex: Male

DRUGS (1)
  1. ZYPREXA INTRAMUSCULAR [Suspect]
     Active Substance: OLANZAPINE
     Indication: SCHIZOPHRENIA
     Dosage: 20 MG, QD
     Route: 030

REACTIONS (4)
  - Incorrect drug administration duration [Not Recovered/Not Resolved]
  - Abnormal behaviour [Unknown]
  - Off label use [Not Recovered/Not Resolved]
  - Electrocardiogram abnormal [Unknown]
